FAERS Safety Report 22149362 (Version 1)
Quarter: 2023Q1

REPORT INFORMATION
  Report Type: Spontaneous
  Country: CN (occurrence: CN)
  Receive Date: 20230329
  Receipt Date: 20230329
  Transmission Date: 20230418
  Serious: Yes (Hospitalization)
  Sender: FDA-Public Use
  Company Number: CN-ABBOTT-2023A-1361506

PATIENT
  Age: 38 Year
  Sex: Female
  Weight: 68 kg

DRUGS (1)
  1. FENOFIBRATE [Suspect]
     Active Substance: FENOFIBRATE
     Indication: Lipids abnormal
     Route: 048
     Dates: start: 20230224, end: 20230314

REACTIONS (1)
  - Transaminases abnormal [Recovering/Resolving]

NARRATIVE: CASE EVENT DATE: 20230315
